FAERS Safety Report 21615785 (Version 1)
Quarter: 2022Q4

REPORT INFORMATION
  Report Type: Report from Study
  Country: US (occurrence: US)
  Receive Date: 20221118
  Receipt Date: 20221118
  Transmission Date: 20230113
  Serious: Yes (Other)
  Sender: FDA-Public Use
  Company Number: US-TAKEDA-2022TUS085638

PATIENT
  Age: 77 Year
  Sex: Female

DRUGS (12)
  1. TEDUGLUTIDE [Suspect]
     Active Substance: TEDUGLUTIDE
     Indication: Short-bowel syndrome
     Dosage: 1.5 MILLIGRAM, QD
     Route: 042
     Dates: start: 20180210, end: 20181009
  2. TEDUGLUTIDE [Suspect]
     Active Substance: TEDUGLUTIDE
     Indication: Short-bowel syndrome
     Dosage: 1.5 MILLIGRAM, QD
     Route: 042
     Dates: start: 20180210, end: 20181009
  3. TEDUGLUTIDE [Suspect]
     Active Substance: TEDUGLUTIDE
     Indication: Short-bowel syndrome
     Dosage: 1.5 MILLIGRAM, QD
     Route: 042
     Dates: start: 20180210, end: 20181009
  4. TEDUGLUTIDE [Suspect]
     Active Substance: TEDUGLUTIDE
     Indication: Short-bowel syndrome
     Dosage: 1.5 MILLIGRAM, QD
     Route: 042
     Dates: start: 20180210, end: 20181009
  5. TEDUGLUTIDE [Suspect]
     Active Substance: TEDUGLUTIDE
     Dosage: 1.5 MILLIGRAM, 4/WEEK
     Route: 042
     Dates: start: 20181009
  6. TEDUGLUTIDE [Suspect]
     Active Substance: TEDUGLUTIDE
     Dosage: 1.5 MILLIGRAM, 4/WEEK
     Route: 042
     Dates: start: 20181009
  7. TEDUGLUTIDE [Suspect]
     Active Substance: TEDUGLUTIDE
     Dosage: 1.5 MILLIGRAM, 4/WEEK
     Route: 042
     Dates: start: 20181009
  8. TEDUGLUTIDE [Suspect]
     Active Substance: TEDUGLUTIDE
     Dosage: 1.5 MILLIGRAM, 4/WEEK
     Route: 042
     Dates: start: 20181009
  9. MAGNESIUM OXIDE [Concomitant]
     Active Substance: MAGNESIUM OXIDE
     Indication: Short-bowel syndrome
     Dosage: 400 MILLIGRAM, BID
     Route: 048
     Dates: start: 20180102, end: 20180118
  10. NICOTINE POLACRILEX [Concomitant]
     Active Substance: NICOTINE
     Indication: Tobacco user
     Dosage: 2 MILLIGRAM
     Route: 048
     Dates: start: 20180118
  11. LOPERAMIDE [Concomitant]
     Active Substance: LOPERAMIDE
     Indication: Short-bowel syndrome
     Dosage: 2 MILLIGRAM, BID
     Route: 048
     Dates: start: 20180223
  12. DIPHENHYDRAMINE [Concomitant]
     Active Substance: DIPHENHYDRAMINE
     Indication: Short-bowel syndrome
     Dosage: 25 MILLIGRAM
     Route: 048
     Dates: start: 20180307

REACTIONS (1)
  - Vascular device infection [Recovered/Resolved]

NARRATIVE: CASE EVENT DATE: 20211106
